FAERS Safety Report 8596107-8 (Version None)
Quarter: 2012Q3

REPORT INFORMATION
  Report Type: 
  Country: None (occurrence: None)
  Receive Date: 20120801
  Receipt Date: 20120717
  Transmission Date: 20120928
  Serious: Yes (Hospitalization, Other)
  Sender: FDA-Public Use
  Company Number: 2012MA009045

PATIENT
  Age: 44 Year
  Sex: Female

DRUGS (3)
  1. LEVOTHYROXINE SODIUM [Concomitant]
  2. DOXYCYCLINE HYCLATE [Suspect]
     Indication: OTITIS MEDIA ACUTE
     Dosage: 200 MG; PO
     Route: 048
     Dates: start: 20120222, end: 20120622
  3. TRIMETHOPRIM [Suspect]
     Indication: URINARY TRACT INFECTION
     Dosage: 200 MG; BID
     Dates: start: 20120625, end: 20120628

REACTIONS (1)
  - HEPATITIS [None]
